FAERS Safety Report 12668359 (Version 1)
Quarter: 2016Q3

REPORT INFORMATION
  Report Type: Report from Study
  Country: US (occurrence: US)
  Receive Date: 20160819
  Receipt Date: 20160819
  Transmission Date: 20161109
  Serious: Yes (Hospitalization, Other)
  Sender: FDA-Public Use
  Company Number: US-AMGEN-USASP2013055545

PATIENT
  Age: 59 Year
  Sex: Female

DRUGS (7)
  1. ENBREL [Suspect]
     Active Substance: ETANERCEPT
     Indication: RHEUMATOID ARTHRITIS
     Dosage: 25 MG, 2 TIMES/WK
     Route: 065
     Dates: start: 20050601
  2. ENBREL [Suspect]
     Active Substance: ETANERCEPT
     Dosage: 25 MG, QWK
     Route: 065
  3. ENBREL [Suspect]
     Active Substance: ETANERCEPT
     Dosage: 50 MG, QWK
     Route: 065
  4. ENBREL [Suspect]
     Active Substance: ETANERCEPT
     Dosage: 25 MG, Q2WK
     Route: 065
  5. IRON [Concomitant]
     Active Substance: IRON
     Dosage: UNK
     Dates: start: 201607
  6. LEFLUNOMIDE. [Concomitant]
     Active Substance: LEFLUNOMIDE
     Dosage: UNK
  7. VITAMIN C [Concomitant]
     Active Substance: ASCORBIC ACID
     Dosage: UNK
     Dates: start: 201607

REACTIONS (23)
  - Wound infection staphylococcal [Recovered/Resolved]
  - Post herpetic neuralgia [Unknown]
  - Stress [Unknown]
  - Swelling [Recovered/Resolved]
  - Hip arthroplasty [Unknown]
  - Spinal laminectomy [Recovered/Resolved]
  - Hypotension [Unknown]
  - Spinal fusion surgery [Unknown]
  - Purulent discharge [Unknown]
  - Inflammation [Unknown]
  - Pain [Unknown]
  - Gastrointestinal ulcer haemorrhage [Unknown]
  - Malaise [Unknown]
  - Peripheral swelling [Not Recovered/Not Resolved]
  - Joint swelling [Not Recovered/Not Resolved]
  - Loss of consciousness [Unknown]
  - Haemoglobin decreased [Unknown]
  - Tremor [Unknown]
  - Rheumatoid arthritis [Not Recovered/Not Resolved]
  - Herpes zoster [Unknown]
  - Injection site pain [Unknown]
  - Pyrexia [Unknown]
  - Back pain [Not Recovered/Not Resolved]

NARRATIVE: CASE EVENT DATE: 2008
